FAERS Safety Report 4617258-6 (Version None)
Quarter: 2005Q1

REPORT INFORMATION
  Report Type: 
  Country: None (occurrence: None)
  Receive Date: 20050323
  Receipt Date: 20050224
  Transmission Date: 20050727
  Serious: Yes (Death, Life-Threatening)
  Sender: FDA-Public Use
  Company Number: BE-MERCK-0502BEL00035

PATIENT
  Age: 69 Year
  Sex: Female

DRUGS (10)
  1. ZETIA [Suspect]
     Indication: HYPERCHOLESTEROLAEMIA
     Route: 048
     Dates: start: 20041103, end: 20041215
  2. CLOPIDOGREL BISULFATE [Concomitant]
     Indication: CORONARY ARTERY DISEASE
     Route: 048
     Dates: start: 20000101
  3. CLOPIDOGREL BISULFATE [Concomitant]
     Indication: ANGIOPATHY
     Route: 048
     Dates: start: 20000101
  4. ROSUVASTATIN CALCIUM [Concomitant]
     Indication: HYPERCHOLESTEROLAEMIA
     Route: 048
     Dates: start: 20041201
  5. ASPIRIN [Concomitant]
     Indication: PROPHYLAXIS
     Route: 048
     Dates: start: 19950101
  6. ISOSORBIDE DINITRATE [Concomitant]
     Indication: CORONARY ARTERY DISEASE
     Route: 048
     Dates: start: 20040101
  7. ISOSORBIDE DINITRATE [Concomitant]
     Indication: ANGIOPATHY
     Route: 048
     Dates: start: 20040101
  8. AMLODIPINE BESYLATE [Concomitant]
     Indication: CORONARY ARTERY DISEASE
     Route: 048
  9. AMLODIPINE BESYLATE [Concomitant]
     Indication: ANGIOPATHY
     Route: 048
  10. VENLAFAXINE HYDROCHLORIDE [Concomitant]
     Indication: DEPRESSION
     Route: 048

REACTIONS (1)
  - LUNG CANCER METASTATIC [None]
